FAERS Safety Report 13318939 (Version 1)
Quarter: 2017Q1

REPORT INFORMATION
  Report Type: Spontaneous
  Country: CN (occurrence: CN)
  Receive Date: 20170310
  Receipt Date: 20170310
  Transmission Date: 20170428
  Serious: Yes (Other)
  Sender: FDA-Public Use
  Company Number: CN-UNITED THERAPEUTICS-UNT-2017-002924

PATIENT
  Age: 0 Day
  Sex: Male
  Weight: 1.9 kg

DRUGS (3)
  1. REMODULIN [Suspect]
     Active Substance: TREPROSTINIL
     Dosage: 0.015 ?G/KG, CONTINUING (1.125 MG TOTAL DAILY DOSE)
     Route: 041
     Dates: start: 20170221, end: 20170225
  2. REMODULIN [Suspect]
     Active Substance: TREPROSTINIL
     Indication: PULMONARY ARTERIAL HYPERTENSION
     Dosage: 0.00125 ?G/KG, CONTINUING (0.098 MG TOTAL DAILY DOSE)
     Route: 058
     Dates: start: 20170117, end: 20170225
  3. REMODULIN [Suspect]
     Active Substance: TREPROSTINIL
     Dosage: 0.01375 ?G/KG,CONTINUING (1.032 MG TOTAL DAILY DOSE)
     Route: 058
     Dates: start: 20170125

REACTIONS (3)
  - Pulmonary malformation [Unknown]
  - Heart disease congenital [Unknown]
  - Congenital renal disorder [Unknown]

NARRATIVE: CASE EVENT DATE: 20170221
